FAERS Safety Report 21816487 (Version 1)
Quarter: 2023Q1

REPORT INFORMATION
  Report Type: Report from Study
  Country: US (occurrence: US)
  Receive Date: 20230104
  Receipt Date: 20230104
  Transmission Date: 20230418
  Serious: No
  Sender: FDA-Public Use
  Company Number: US-ACORDA-ACO_171678_2022

PATIENT
  Age: 71 Year
  Sex: Male

DRUGS (14)
  1. INBRIJA [Suspect]
     Active Substance: LEVODOPA
     Indication: Parkinson^s disease
     Dosage: 2 DOSAGE FORM (84 MG), PRN (NOT TO EXCEED 5 DOSES A DAY)
  2. INBRIJA [Suspect]
     Active Substance: LEVODOPA
     Indication: On and off phenomenon
     Dosage: 84 MILLIGRAM (2 CAPSULES), PRN (NOT TO EXCEED 5 DOSES A DAY)
     Dates: start: 20220209
  3. INBRIJA [Suspect]
     Active Substance: LEVODOPA
     Dosage: ONE CAPSULE PER DOSE ONE TO 3 TIMES A DAY AS NEEDED
     Dates: start: 20220224
  4. ENTACAPONE [Suspect]
     Active Substance: ENTACAPONE
     Indication: Product used for unknown indication
     Dosage: 200 MILLIGRAM
     Route: 065
  5. MELATONIN [Concomitant]
     Active Substance: MELATONIN
     Indication: Product used for unknown indication
     Dosage: 3 MILLIGRAM
     Route: 065
  6. MIRALAX [Concomitant]
     Active Substance: POLYETHYLENE GLYCOL 3350
     Indication: Product used for unknown indication
     Dosage: 3350 NF
     Route: 065
  7. STOOL SOFTENER (DOCUSATE) [Concomitant]
     Active Substance: DOCUSATE
     Indication: Product used for unknown indication
     Dosage: 100 MILLIGRAM
     Route: 065
  8. CARBIDOPA LEVODOPA [Concomitant]
     Active Substance: CARBIDOPA\LEVODOPA
     Indication: Product used for unknown indication
     Dosage: 25-100 2-1/2 TABS, QID
     Route: 065
  9. CARBIDOPA LEVODOPA [Concomitant]
     Active Substance: CARBIDOPA\LEVODOPA
     Dosage: 2 250 MILLIGRAM, QID
     Route: 065
  10. RYTARY [Concomitant]
     Active Substance: CARBIDOPA\LEVODOPA
     Indication: Product used for unknown indication
     Dosage: 48.75-195 MG 2 TAB AT NIGHT
     Route: 065
  11. Inseptation [Concomitant]
     Indication: Product used for unknown indication
     Dosage: 200 MILLIGRAM (1 TAB), QID
     Route: 065
  12. RASAGILINE [Concomitant]
     Active Substance: RASAGILINE
     Indication: Product used for unknown indication
     Dosage: 1 MILLIGRAM TAB, QD
     Route: 065
  13. AZILECT [Concomitant]
     Active Substance: RASAGILINE MESYLATE
     Indication: Product used for unknown indication
     Dosage: 1 MILLIGRAM
     Route: 065
  14. RIVASTIGMINE [Concomitant]
     Active Substance: RIVASTIGMINE
     Indication: Product used for unknown indication
     Dosage: 9.5 MILLIGRAM PATCH, QD
     Route: 065

REACTIONS (17)
  - Therapeutic product effect variable [Unknown]
  - Saliva altered [Not Recovered/Not Resolved]
  - Epistaxis [Not Recovered/Not Resolved]
  - Nasal dryness [Recovering/Resolving]
  - Intentional underdose [Unknown]
  - Device difficult to use [Unknown]
  - Respiratory disorder [Not Recovered/Not Resolved]
  - Product residue present [Unknown]
  - Saliva discolouration [Not Recovered/Not Resolved]
  - Tremor [Not Recovered/Not Resolved]
  - Chromaturia [Not Recovered/Not Resolved]
  - Anxiety [Not Recovered/Not Resolved]
  - Inappropriate schedule of product administration [Unknown]
  - Wrong technique in device usage process [Unknown]
  - Sputum discoloured [Recovered/Resolved]
  - Cough [Not Recovered/Not Resolved]
  - Sputum discoloured [Recovering/Resolving]

NARRATIVE: CASE EVENT DATE: 20220130
